FAERS Safety Report 17245720 (Version 1)
Quarter: 2020Q1

REPORT INFORMATION
  Report Type: Spontaneous
  Country: JP (occurrence: JP)
  Receive Date: 20200108
  Receipt Date: 20200108
  Transmission Date: 20200409
  Serious: Yes (Hospitalization)
  Sender: FDA-Public Use
  Company Number: JP-SA-2020SA001563

PATIENT
  Age: 78 Year
  Sex: Female

DRUGS (10)
  1. RIFAMPICIN [Suspect]
     Active Substance: RIFAMPIN
     Dosage: HYPOSENSITIZATION THERAPY WAS INITIATED
  2. ISONIAZID. [Suspect]
     Active Substance: ISONIAZID
     Dosage: 250 MG, QD
  3. ETHAMBUTOL [Suspect]
     Active Substance: ETHAMBUTOL HYDROCHLORIDE
     Indication: DISSEMINATED TUBERCULOSIS
     Dosage: 500 MG, QD
  4. ETHAMBUTOL [Suspect]
     Active Substance: ETHAMBUTOL HYDROCHLORIDE
     Dosage: 750 MG, QD
  5. PYRAZINAMIDE. [Suspect]
     Active Substance: PYRAZINAMIDE
     Dosage: 1.2 G, QD
  6. ISONIAZID. [Suspect]
     Active Substance: ISONIAZID
     Indication: DISSEMINATED TUBERCULOSIS
     Dosage: 200 MG, QD
  7. ISONIAZID. [Suspect]
     Active Substance: ISONIAZID
     Dosage: 300 MG, QD
  8. RIFAMPICIN [Suspect]
     Active Substance: RIFAMPIN
     Dosage: 450 MG, QD
  9. PYRAZINAMIDE. [Suspect]
     Active Substance: PYRAZINAMIDE
     Indication: DISSEMINATED TUBERCULOSIS
     Dosage: 1000 MG, QD
  10. RIFAMPICIN [Suspect]
     Active Substance: RIFAMPIN
     Indication: DISSEMINATED TUBERCULOSIS
     Dosage: 300 MG, QD

REACTIONS (6)
  - Eosinophilia [Recovered/Resolved]
  - Lung opacity [Recovered/Resolved]
  - Pyrexia [Recovered/Resolved]
  - Fatigue [Recovered/Resolved]
  - Malaise [Recovered/Resolved]
  - Paradoxical drug reaction [Recovered/Resolved]
